FAERS Safety Report 4576524-3 (Version None)
Quarter: 2005Q1

REPORT INFORMATION
  Report Type: 
  Country: None (occurrence: None)
  Receive Date: 20050119
  Receipt Date: 20040426
  Transmission Date: 20050727
  Serious: Yes (Other)
  Sender: FDA-Public Use
  Company Number: A03200401294

PATIENT
  Age: 77 Year
  Sex: Male

DRUGS (8)
  1. PLAVIX [Suspect]
     Indication: CARDIAC OPERATION
     Dosage: 75 MG QD - ORAL
     Route: 048
     Dates: start: 20030101, end: 20031201
  2. PLAVIX [Suspect]
     Indication: CAROTID ARTERY DISEASE
     Dosage: 75 MG QD - ORAL
     Route: 048
     Dates: start: 20030101, end: 20031201
  3. PLAVIX [Suspect]
     Indication: CEREBROVASCULAR ACCIDENT
     Dosage: 75 MG QD - ORAL
     Route: 048
     Dates: start: 20030101, end: 20031201
  4. LIPITOR [Suspect]
     Indication: BLOOD CHOLESTEROL INCREASED
     Dosage: 20 MG QD - ORAL
     Route: 048
     Dates: end: 20031101
  5. METOPROLOL SUCCINATE [Concomitant]
  6. ISOSORBIDE [Concomitant]
  7. ACETYLSALICYLIC ACID [Concomitant]
  8. TAMSULOSIN HCL [Concomitant]

REACTIONS (3)
  - ALANINE AMINOTRANSFERASE INCREASED [None]
  - ASPARTATE AMINOTRANSFERASE INCREASED [None]
  - ASTHENIA [None]
